FAERS Safety Report 8546903-8 (Version None)
Quarter: 2012Q3

REPORT INFORMATION
  Report Type: 
  Country: None (occurrence: None)
  Receive Date: 20120727
  Receipt Date: 20120118
  Transmission Date: 20120928
  Serious: No
  Sender: FDA-Public Use
  Company Number: US-ASTRAZENECA-2012SE03656

PATIENT
  Age: 37 Year
  Sex: Male
  Weight: 72.6 kg

DRUGS (10)
  1. SEROQUEL [Suspect]
     Route: 048
  2. SEROQUEL [Suspect]
     Indication: ANXIETY DISORDER
     Route: 048
     Dates: start: 20050101
  3. PROTONIX [Concomitant]
  4. NEURONTIN [Concomitant]
  5. SEROQUEL [Suspect]
     Indication: BIPOLAR I DISORDER
     Route: 048
     Dates: start: 20050101
  6. SEROQUEL [Suspect]
     Route: 048
  7. DICLOFENAC [Concomitant]
  8. DILANTIN [Concomitant]
  9. HUMALOG [Concomitant]
  10. LEVEMIR [Concomitant]

REACTIONS (6)
  - HALLUCINATION [None]
  - WRONG TECHNIQUE IN DRUG USAGE PROCESS [None]
  - DRUG INEFFECTIVE [None]
  - WEIGHT INCREASED [None]
  - DRUG DOSE OMISSION [None]
  - INSOMNIA [None]
